FAERS Safety Report 5690186-3 (Version None)
Quarter: 2008Q2

REPORT INFORMATION
  Report Type: 
  Country: None (occurrence: None)
  Receive Date: 20080401
  Receipt Date: 20080326
  Transmission Date: 20081010
  Serious: Yes (Other)
  Sender: FDA-Public Use
  Company Number: IT-BRISTOL-MYERS SQUIBB COMPANY-14092415

PATIENT
  Sex: Female

DRUGS (3)
  1. ABILIFY [Suspect]
     Indication: BIPOLAR DISORDER
     Dosage: AFTER DELIVERY ABILIFY DOSE WAS INCREASED TO 10 MG.
     Dates: start: 20050101
  2. ZOLOFT [Concomitant]
  3. LITHIUM [Concomitant]

REACTIONS (3)
  - NORMAL NEWBORN [None]
  - PRE-ECLAMPSIA [None]
  - PREGNANCY [None]
